FAERS Safety Report 4555274-3 (Version None)
Quarter: 2004Q4

REPORT INFORMATION
  Report Type: 
  Country: None (occurrence: None)
  Receive Date: 20041227
  Receipt Date: 20040730
  Transmission Date: 20050328
  Serious: No
  Sender: FDA-Public Use
  Company Number: US085548

PATIENT
  Sex: Male

DRUGS (1)
  1. ARANESP [Suspect]
     Indication: ANAEMIA
     Dosage: 200 MCG, 1 IN 2 WEEKS, SC
     Route: 058

REACTIONS (1)
  - HYPOGLYCAEMIA [None]
